FAERS Safety Report 8592168-0 (Version None)
Quarter: 2012Q3

REPORT INFORMATION
  Report Type: 
  Country: None (occurrence: None)
  Receive Date: 20120814
  Receipt Date: 20120806
  Transmission Date: 20120928
  Serious: Yes (Hospitalization)
  Sender: FDA-Public Use
  Company Number: GB-ELI_LILLY_AND_COMPANY-GB201208001498

PATIENT
  Age: 21 Year
  Sex: Female
  Weight: 53.1 kg

DRUGS (3)
  1. DIAZEPAM [Concomitant]
     Dosage: 1 DF, UNKNOWN
  2. QUETIAPINE [Concomitant]
     Indication: BORDERLINE PERSONALITY DISORDER
     Dosage: 500 MG, QD
  3. FLUOXETINE HCL [Suspect]
     Indication: BORDERLINE PERSONALITY DISORDER
     Dosage: 40 MG, QD
     Dates: start: 20110101

REACTIONS (11)
  - HYPERSOMNIA [None]
  - DYSPEPSIA [None]
  - RESTLESSNESS [None]
  - MANIA [None]
  - OFF LABEL USE [None]
  - AGGRESSION [None]
  - HAEMATOCHEZIA [None]
  - GASTRIC DILATATION [None]
  - ARTHROPATHY [None]
  - CONDITION AGGRAVATED [None]
  - BLOOD URINE PRESENT [None]
